FAERS Safety Report 25239139 (Version 1)
Quarter: 2025Q2

REPORT INFORMATION
  Report Type: Other
  Country: US (occurrence: US)
  Receive Date: 20250425
  Receipt Date: 20250425
  Transmission Date: 20250717
  Serious: Yes (Hospitalization, Other)
  Sender: ANI
  Company Number: US-ANIPHARMA-022473

PATIENT
  Age: 14 Year
  Sex: Female

DRUGS (7)
  1. METHYLPHENIDATE [Suspect]
     Active Substance: METHYLPHENIDATE
     Indication: Major depression
     Route: 048
  2. FLUOXETINE [Suspect]
     Active Substance: FLUOXETINE HYDROCHLORIDE
     Indication: Major depression
     Route: 048
  3. OLANZAPINE [Concomitant]
     Active Substance: OLANZAPINE
     Indication: Major depression
     Route: 048
  4. ARIPIPRAZOLE [Concomitant]
     Active Substance: ARIPIPRAZOLE
     Indication: Major depression
     Route: 048
  5. CLONAZEPAM [Concomitant]
     Active Substance: CLONAZEPAM
     Indication: Anxiety
  6. QUETIAPINE [Concomitant]
     Active Substance: QUETIAPINE
     Indication: Major depression
     Route: 048
  7. BUPROPION [Concomitant]
     Active Substance: BUPROPION
     Indication: Major depression
     Route: 048

REACTIONS (9)
  - Blood sodium increased [Unknown]
  - Protein total increased [Unknown]
  - Blood magnesium increased [Unknown]
  - High density lipoprotein increased [Unknown]
  - Proteinuria [Unknown]
  - Suicide attempt [Unknown]
  - Intentional overdose [Unknown]
  - Tachycardia [Unknown]
  - Dyspepsia [Unknown]
